FAERS Safety Report 4307631-8 (Version None)
Quarter: 2004Q1

REPORT INFORMATION
  Report Type: 
  Country: None (occurrence: None)
  Receive Date: 20040227
  Receipt Date: 20040227
  Transmission Date: 20041129
  Serious: Yes (Hospitalization)
  Sender: FDA-Public Use
  Company Number: None

PATIENT
  Sex: Male
  Weight: 87.0906 kg

DRUGS (5)
  1. REMICADE [Suspect]
     Indication: RHEUMATOID ARTHRITIS
     Dosage: 300 MG IV Q8 WKS
     Route: 042
     Dates: start: 20030812, end: 20031121
  2. PREDNISONE [Concomitant]
  3. NORVASC [Concomitant]
  4. HYDROCHLOROTHIAZIDE [Concomitant]
  5. ZESTRIL [Concomitant]

REACTIONS (21)
  - ASTHENIA [None]
  - BACTERIAL INFECTION [None]
  - CANDIDIASIS [None]
  - CATHETER SITE INFECTION [None]
  - COUGH [None]
  - DRUG WITHDRAWAL SYNDROME [None]
  - DYSPHAGIA [None]
  - DYSPNOEA [None]
  - HYPERGLYCAEMIA [None]
  - HYPERTENSION [None]
  - HYPOTENSION [None]
  - LEGIONELLA INFECTION [None]
  - LOOSE STOOLS [None]
  - MARKEDLY REDUCED DIETARY INTAKE [None]
  - PNEUMONIA LEGIONELLA [None]
  - PNEUMOTHORAX [None]
  - PRODUCTIVE COUGH [None]
  - RENAL FAILURE ACUTE [None]
  - RESPIRATORY FAILURE [None]
  - RHEUMATOID ARTHRITIS [None]
  - SEPSIS [None]
